FAERS Safety Report 24375139 (Version 1)
Quarter: 2024Q3

REPORT INFORMATION
  Report Type: Spontaneous
  Country: KR (occurrence: KR)
  Receive Date: 20240928
  Receipt Date: 20240928
  Transmission Date: 20241016
  Serious: Yes (Death)
  Sender: ABBVIE
  Company Number: KR-PFIZER INC-202400262696

PATIENT

DRUGS (1)
  1. AVIBACTAM SODIUM\CEFTAZIDIME [Suspect]
     Active Substance: AVIBACTAM SODIUM\CEFTAZIDIME
     Indication: Product used for unknown indication
     Dosage: UNK
     Route: 065

REACTIONS (2)
  - Encephalopathy [Fatal]
  - Loss of consciousness [Fatal]
